FAERS Safety Report 4617234-3 (Version None)
Quarter: 2005Q1

REPORT INFORMATION
  Report Type: 
  Country: None (occurrence: None)
  Receive Date: 20050323
  Receipt Date: 20050218
  Transmission Date: 20050727
  Serious: Yes (Life-Threatening, Other)
  Sender: FDA-Public Use
  Company Number: CA-NOVOPROD-242457

PATIENT
  Age: 53 Year
  Sex: Male
  Weight: 93 kg

DRUGS (42)
  1. NIASTASE [Suspect]
     Indication: HAEMORRHAGE
     Dosage: 7.2 MG, 2 DOSES
     Route: 042
     Dates: start: 20050117, end: 20050117
  2. AMIODARONE [Concomitant]
     Dosage: 150 MG, SINGLE
     Route: 042
     Dates: start: 20050117, end: 20050117
  3. BISACODYL [Concomitant]
  4. CALCIUM GLUCONATE [Concomitant]
     Dosage: 2 DOSES
     Route: 042
     Dates: start: 20050117, end: 20050117
  5. CHLORHEXIDINE [Concomitant]
     Dosage: 10-15 ML MOUTHWASH
     Route: 048
     Dates: start: 20050121, end: 20050131
  6. CIPROFLOXACIN [Concomitant]
     Dosage: 400 MG, QD
     Route: 042
     Dates: end: 20050119
  7. CIPROFLOXACIN [Concomitant]
     Dosage: 500 MG, QD
     Route: 048
     Dates: start: 20050119, end: 20050129
  8. CISATRACURIUM [Concomitant]
     Dosage: 2 MG, QD
     Route: 042
  9. COUMADIN [Concomitant]
     Dosage: ORAL DOSE ACCORDING TO INR
     Route: 048
     Dates: start: 20050124
  10. DIGOXIN [Concomitant]
     Dosage: .062 MG, QD
     Route: 048
  11. DIMENHYDRINATE [Concomitant]
  12. DOCUSATE SODIUM [Concomitant]
  13. FENTANYL [Concomitant]
  14. FOLIC ACID [Concomitant]
     Dosage: 5 MG, QD
     Route: 048
  15. DDAVP [Concomitant]
     Dosage: 20 MEQ, QD
     Route: 042
     Dates: start: 20050117
  16. FUROSEMIDE [Concomitant]
     Dosage: 40-80 MG DURING ICU STAY
     Route: 042
  17. NEUPOGEN [Concomitant]
     Dosage: 300 MEQ, QD
     Route: 058
     Dates: start: 20050122, end: 20050131
  18. HEPARIN SODIUM [Concomitant]
     Dosage: 20,000 UNITS IN 500 ML SALINE
     Dates: start: 20050124, end: 20050205
  19. HYDROCORTISONE SODIUM PHOSPHATE [Concomitant]
     Dosage: 50 MG, QD
     Route: 042
     Dates: start: 20050121, end: 20050122
  20. INSULIN                                 /N/A/ [Concomitant]
  21. LACTULOSE [Concomitant]
     Dosage: 30 ML, BID
     Route: 048
  22. NOREPINEPHRINE [Concomitant]
     Dates: start: 20050116, end: 20050117
  23. LEVOFLOXACIN [Concomitant]
  24. LIDOCAINE [Concomitant]
  25. MAGNESIUM SULFATE [Concomitant]
     Dosage: 2 MG, UNK
     Route: 042
     Dates: start: 20050124, end: 20050125
  26. METOLAZONE [Concomitant]
     Dosage: 10 MG, UNK
     Route: 042
     Dates: start: 20050118, end: 20050118
  27. METRONIDAZOLE [Concomitant]
     Dosage: 500 MG, UNK
     Route: 042
     Dates: end: 20050119
  28. MICRO-K [Concomitant]
     Dosage: 16 MEQ, QD
     Route: 048
     Dates: start: 20050122, end: 20050124
  29. MORPHINE [Concomitant]
     Route: 042
     Dates: start: 20050116, end: 20050117
  30. FLEET ENEMA [Concomitant]
  31. NYSTATIN [Concomitant]
     Dosage: 1 ML 6 HRLY
     Route: 048
     Dates: start: 20050122, end: 20050131
  32. OMEPRAZOLE [Concomitant]
     Dosage: 20 MG, BID
     Route: 048
  33. PANTOPRAZOLE [Concomitant]
     Dosage: 40 MG, QD
     Route: 042
  34. PERCOCET [Concomitant]
     Dosage: 1-2 TABLETS 4 HRLY
  35. PHYTONADIONE [Concomitant]
     Dosage: 5 MG, UNK
     Route: 042
     Dates: start: 20050117, end: 20050117
  36. PHYTONADIONE [Concomitant]
     Dosage: 10 MG, UNK
     Route: 042
     Dates: start: 20050204, end: 20050204
  37. PHYTONADIONE [Concomitant]
     Dosage: 10 MG, UNK
     Route: 048
     Dates: start: 20050112
  38. PHYTONADIONE [Concomitant]
     Dosage: 10 MG, UNK
     Route: 048
     Dates: start: 20050116
  39. TAZOCIN [Concomitant]
     Dosage: 2.25 MG, UNK
     Route: 042
     Dates: end: 20050117
  40. POTASSIUM CHLORIDE [Concomitant]
  41. PROTAMINE SULFATE [Concomitant]
     Dosage: 50 MG, 2 DOSES
     Dates: start: 20050117, end: 20050117
  42. VANCOMYCIN [Concomitant]
     Dosage: 1 G, QD
     Route: 042
     Dates: start: 20050117

REACTIONS (2)
  - LOSS OF CONSCIOUSNESS [None]
  - NEUTROPENIA [None]
